FAERS Safety Report 7417385-4 (Version None)
Quarter: 2011Q2

REPORT INFORMATION
  Report Type: 
  Country: None (occurrence: None)
  Receive Date: 20110415
  Receipt Date: 20110204
  Transmission Date: 20111010
  Serious: No
  Sender: FDA-Public Use
  Company Number: US-B.I. PHARMACEUTICALS,INC./RIDGEFIELD-2011-BP-03795BP

PATIENT
  Sex: Male

DRUGS (7)
  1. POTASSIUM CHLORIDE [Concomitant]
     Indication: SUPPLEMENTATION THERAPY
     Route: 048
  2. COREG [Concomitant]
     Indication: EJECTION FRACTION DECREASED
     Route: 048
  3. MELOXICAM [Concomitant]
     Indication: BURSITIS
     Route: 048
  4. BENICAR [Concomitant]
     Indication: HYPERTENSION
     Dosage: 40 MG
     Route: 048
  5. LASIX [Concomitant]
     Indication: CARDIAC FAILURE CONGESTIVE
     Route: 048
  6. PRADAXA [Suspect]
     Indication: ATRIAL FIBRILLATION
     Dosage: 300 MG
     Route: 048
     Dates: start: 20110101, end: 20110201
  7. ASPIRIN [Concomitant]
     Indication: PROPHYLAXIS
     Dosage: 81 MG
     Route: 048

REACTIONS (2)
  - HAEMORRHOIDS [None]
  - HAEMORRHOIDAL HAEMORRHAGE [None]
